FAERS Safety Report 25450855 (Version 1)
Quarter: 2025Q2

REPORT INFORMATION
  Report Type: Report from Study
  Country: US (occurrence: US)
  Receive Date: 20250618
  Receipt Date: 20250618
  Transmission Date: 20250716
  Serious: Yes (Hospitalization, Other)
  Sender: ALEXION PHARMACEUTICALS
  Company Number: US-AstraZeneca-CH-00892304A

PATIENT
  Age: 75 Year

DRUGS (1)
  1. OSIMERTINIB [Suspect]
     Active Substance: OSIMERTINIB
     Route: 065

REACTIONS (8)
  - Platelet count decreased [Not Recovered/Not Resolved]
  - Lymphocyte count decreased [Recovered/Resolved with Sequelae]
  - Weight increased [Unknown]
  - Complication associated with device [Unknown]
  - Dry eye [Unknown]
  - Rash [Unknown]
  - Fatigue [Unknown]
  - Vasculitis [Unknown]
